FAERS Safety Report 8471611-1 (Version None)
Quarter: 2012Q2

REPORT INFORMATION
  Report Type: 
  Country: None (occurrence: None)
  Receive Date: 20120323
  Receipt Date: 20111130
  Transmission Date: 20120825
  Serious: Yes (Hospitalization)
  Sender: FDA-Public Use
  Company Number: 163-21880-11110617

PATIENT
  Age: 66 Year
  Sex: Female
  Weight: 70.3075 kg

DRUGS (19)
  1. ALENDRONATE SODIUM [Concomitant]
  2. FOSAMAX [Concomitant]
  3. REVLIMID [Suspect]
     Indication: MULTIPLE MYELOMA
     Dosage: 25 MG, X 28 DAYS ON 7 DAYS OFF, PO, 25 MG, DAILY, PO, 25 MG, X 28 DAYS ON 7 DAYS OFF, PO
     Route: 048
     Dates: start: 20080328
  4. REVLIMID [Suspect]
     Indication: MULTIPLE MYELOMA
     Dosage: 25 MG, X 28 DAYS ON 7 DAYS OFF, PO, 25 MG, DAILY, PO, 25 MG, X 28 DAYS ON 7 DAYS OFF, PO
     Route: 048
     Dates: start: 20111021
  5. REVLIMID [Suspect]
     Indication: MULTIPLE MYELOMA
     Dosage: 25 MG, X 28 DAYS ON 7 DAYS OFF, PO, 25 MG, DAILY, PO, 25 MG, X 28 DAYS ON 7 DAYS OFF, PO
     Route: 048
     Dates: start: 20110501, end: 20110821
  6. LEVOTHYROXINE SODIUM [Concomitant]
  7. DEXAMETHASONE [Concomitant]
  8. POTASSIUM CHLORIDE [Concomitant]
  9. MULTIVITAMIN [Concomitant]
  10. DUREZOL (DIFLUPREDNATE) [Concomitant]
  11. FELODIPINE SR (FELODIPINE) [Concomitant]
  12. ACEBUTOLOL HCL (ACEBUTOLOL HYDROCHLORIDE) [Concomitant]
  13. COMPLEX (BECOSYM FORTE) [Concomitant]
  14. ASPIRIN [Concomitant]
  15. CALCIUM CARBONATE-VITAMIN D (OS-CAL) [Concomitant]
  16. ALLEGRA [Concomitant]
  17. ASCORBIC ACID [Concomitant]
  18. NITROGLYCERIN [Concomitant]
  19. SYNTHROID [Concomitant]

REACTIONS (2)
  - DIZZINESS [None]
  - CATARACT [None]
